FAERS Safety Report 5618261-X (Version None)
Quarter: 2008Q1

REPORT INFORMATION
  Report Type: 
  Country: None (occurrence: None)
  Receive Date: 20080207
  Receipt Date: 20080123
  Transmission Date: 20080703
  Serious: Yes (Hospitalization, Other)
  Sender: FDA-Public Use
  Company Number: US-AMGEN-STX262158

PATIENT
  Sex: Female

DRUGS (1)
  1. ENBREL [Suspect]
     Indication: RHEUMATOID ARTHRITIS
     Route: 058
     Dates: start: 19991130

REACTIONS (9)
  - AORTIC STENOSIS [None]
  - AORTIC VALVE DISEASE [None]
  - CARDIAC MURMUR [None]
  - COLITIS [None]
  - DYSPNOEA [None]
  - FATIGUE [None]
  - GAIT DISTURBANCE [None]
  - HEPATOMEGALY [None]
  - WEIGHT DECREASED [None]
